FAERS Safety Report 6554338-2 (Version None)
Quarter: 2010Q1

REPORT INFORMATION
  Report Type: 
  Country: None (occurrence: None)
  Receive Date: 20100127
  Receipt Date: 20100125
  Transmission Date: 20100710
  Serious: Yes (Other)
  Sender: FDA-Public Use
  Company Number: A0841276A

PATIENT
  Age: 50 Year
  Sex: Male
  Weight: 111.4 kg

DRUGS (1)
  1. ROSIGLITAZONE [Suspect]
     Indication: DIABETES MELLITUS
     Dosage: 8MG TWICE PER DAY
     Route: 048
     Dates: start: 20000101

REACTIONS (3)
  - CONDITION AGGRAVATED [None]
  - MYOCARDIAL INFARCTION [None]
  - VISUAL ACUITY REDUCED [None]
